FAERS Safety Report 4976181-8 (Version None)
Quarter: 2006Q2

REPORT INFORMATION
  Report Type: 
  Country: None (occurrence: None)
  Receive Date: 20060412
  Receipt Date: 20060402
  Transmission Date: 20061013
  Serious: Yes (Hospitalization, Other)
  Sender: FDA-Public Use
  Company Number: 2006046205

PATIENT
  Age: 68 Year
  Sex: Male

DRUGS (1)
  1. CELEBREX [Suspect]
     Indication: ARTHRALGIA
     Dosage: 200 MG (100 MG, 2 IN 1 D), ORAL
     Route: 048
     Dates: start: 20060311, end: 20060313

REACTIONS (1)
  - LOCALISED OEDEMA [None]
